FAERS Safety Report 20035038 (Version 1)
Quarter: 2021Q4

REPORT INFORMATION
  Report Type: Spontaneous
  Country: DE (occurrence: DE)
  Receive Date: 20211104
  Receipt Date: 20211104
  Transmission Date: 20220303
  Serious: Yes (Other)
  Sender: FDA-Public Use
  Company Number: DE-ROCHE-2880890

PATIENT
  Sex: Female

DRUGS (3)
  1. TRASTUZUMAB [Suspect]
     Active Substance: TRASTUZUMAB
     Indication: Breast cancer
     Dosage: UNK
     Route: 065
     Dates: start: 202103
  2. TUCATINIB [Concomitant]
     Active Substance: TUCATINIB
     Indication: Breast cancer
     Dosage: UNK
     Dates: start: 202103
  3. CAPECITABINE [Concomitant]
     Active Substance: CAPECITABINE
     Dosage: UNK
     Route: 048
     Dates: start: 202103

REACTIONS (2)
  - Brain oedema [Not Recovered/Not Resolved]
  - Off label use [Unknown]
